FAERS Safety Report 5512336-1 (Version None)
Quarter: 2007Q4

REPORT INFORMATION
  Report Type: 
  Country: None (occurrence: None)
  Receive Date: 20071108
  Receipt Date: 20071028
  Transmission Date: 20080405
  Serious: Yes (Other)
  Sender: FDA-Public Use
  Company Number: CHPA2007US11679

PATIENT
  Age: 68 Year
  Sex: Female

DRUGS (1)
  1. BENEFIBER W/ WHEAT DEXTRIN (NCH)(WHEAT DEXTRIN) POWDER [Suspect]
     Indication: BOWEL MOVEMENT IRREGULARITY
     Dosage: 2 TSP, TID FOR 5 TO 6 MONTHS, ORAL
     Route: 048

REACTIONS (3)
  - BLADDER DISORDER [None]
  - DRUG INEFFECTIVE [None]
  - FAECES HARD [None]
